FAERS Safety Report 6921833-3 (Version None)
Quarter: 2010Q3

REPORT INFORMATION
  Report Type: 
  Country: None (occurrence: None)
  Receive Date: 20100812
  Receipt Date: 20100805
  Transmission Date: 20110219
  Serious: Yes (Other)
  Sender: FDA-Public Use
  Company Number: ZA-ABBOTT-10P-143-0656214-00

PATIENT
  Sex: Female

DRUGS (7)
  1. ALUVIA TABLETS 200MG/50MG [Interacting]
     Indication: HIV INFECTION
     Route: 048
     Dates: start: 20070123, end: 20081013
  2. ALUVIA TABLETS 200MG/50MG [Interacting]
     Dosage: 200/50 MG
     Dates: start: 20090629
  3. VIDEX [Interacting]
     Indication: HIV INFECTION
     Dosage: 400 MG DAILY
  4. KALETRA [Suspect]
     Indication: PRODUCT USED FOR UNKNOWN INDICATION
  5. ZIDOVUDINE [Concomitant]
     Indication: HIV INFECTION
     Dates: start: 20070123, end: 20080112
  6. TENOFOVIR DISOPROXIL FUMARATE [Concomitant]
     Indication: PRODUCT USED FOR UNKNOWN INDICATION
     Dosage: 300 MG DAILY
     Dates: start: 20090629
  7. LAMIVUDINE (EPIVIR HBV) [Concomitant]
     Indication: PRODUCT USED FOR UNKNOWN INDICATION
     Dates: start: 20090629

REACTIONS (3)
  - BREAST ENLARGEMENT [None]
  - DRUG INTERACTION [None]
  - LIPODYSTROPHY ACQUIRED [None]
